FAERS Safety Report 7031466-9 (Version None)
Quarter: 2010Q4

REPORT INFORMATION
  Report Type: 
  Country: None (occurrence: None)
  Receive Date: 20101006
  Receipt Date: 20100924
  Transmission Date: 20110411
  Serious: Yes (Other)
  Sender: FDA-Public Use
  Company Number: US-PFIZER INC-2010122212

PATIENT
  Sex: Male

DRUGS (5)
  1. NEURONTIN [Suspect]
     Indication: CONVULSION
     Dosage: 600 MG, 7 DAILY
     Dates: start: 19950101
  2. PHENYTOIN [Suspect]
     Dosage: UNK
  3. KEPPRA [Suspect]
     Dosage: UNK
  4. FELBATOL [Suspect]
     Dosage: UNK
  5. ZONEGRAN [Suspect]
     Dosage: UNK

REACTIONS (8)
  - DISSOCIATION [None]
  - DRUG INEFFECTIVE [None]
  - DRUG TOXICITY [None]
  - GYNAECOMASTIA [None]
  - HOSTILITY [None]
  - MALAISE [None]
  - NYSTAGMUS [None]
  - ROAD TRAFFIC ACCIDENT [None]
